FAERS Safety Report 11601478 (Version 3)
Quarter: 2017Q4

REPORT INFORMATION
  Report Type: Report from Study
  Country: US (occurrence: US)
  Receive Date: 20151006
  Receipt Date: 20171018
  Transmission Date: 20180320
  Serious: Yes (Other)
  Sender: FDA-Public Use
  Company Number: US-AMGEN-USASP2015009793

PATIENT
  Age: 68 Year
  Sex: Female

DRUGS (1)
  1. PROLIA [Suspect]
     Active Substance: DENOSUMAB
     Indication: OSTEOPOROSIS POSTMENOPAUSAL
     Dosage: 60 MG, Q6MO
     Route: 065
     Dates: start: 20150128

REACTIONS (14)
  - Pain [Not Recovered/Not Resolved]
  - Swelling [Unknown]
  - Tooth injury [Not Recovered/Not Resolved]
  - Neck pain [Unknown]
  - Back pain [Unknown]
  - Pneumonia [Unknown]
  - Tooth disorder [Not Recovered/Not Resolved]
  - Crepitations [Unknown]
  - Arthralgia [Unknown]
  - Peripheral swelling [Unknown]
  - Bone loss [Unknown]
  - Malaise [Unknown]
  - Bone pain [Unknown]
  - Pain in extremity [Unknown]

NARRATIVE: CASE EVENT DATE: 2015
